FAERS Safety Report 25490375 (Version 1)
Quarter: 2025Q2

REPORT INFORMATION
  Report Type: Spontaneous
  Country: CN (occurrence: CN)
  Receive Date: 20250628
  Receipt Date: 20250628
  Transmission Date: 20250716
  Serious: Yes (Other)
  Sender: AMGEN
  Company Number: CN-AMGEN-CHNSP2025121114

PATIENT
  Age: 35 Year
  Sex: Male

DRUGS (1)
  1. XGEVA [Suspect]
     Active Substance: DENOSUMAB
     Indication: Osteitis deformans
     Dosage: 120 MILLIGRAM, Q2MO
     Route: 058
     Dates: start: 2019

REACTIONS (3)
  - Bone giant cell tumour benign [Unknown]
  - Drug ineffective for unapproved indication [Unknown]
  - Off label use [Unknown]
